FAERS Safety Report 9421992 (Version 1)
Quarter: 2013Q3

REPORT INFORMATION
  Report Type: Spontaneous
  Country: US (occurrence: US)
  Receive Date: 20130726
  Receipt Date: 20130726
  Transmission Date: 20140515
  Serious: Yes (Hospitalization)
  Sender: FDA-Public Use
  Company Number: US-BAYER-2013-090014

PATIENT
  Age: 34 Year
  Sex: Female

DRUGS (4)
  1. YASMIN [Suspect]
  2. VALTREX [Concomitant]
  3. LODINE [Concomitant]
     Indication: PLANTAR FASCIITIS
     Dosage: 500 BID.
  4. ADVIL [Concomitant]
     Indication: PLANTAR FASCIITIS

REACTIONS (1)
  - Deep vein thrombosis [Recovered/Resolved]
